FAERS Safety Report 24186558 (Version 3)
Quarter: 2024Q3

REPORT INFORMATION
  Report Type: Report from Study
  Country: BR (occurrence: BR)
  Receive Date: 20240808
  Receipt Date: 20240925
  Transmission Date: 20241017
  Serious: Yes (Life-Threatening, Hospitalization, Other)
  Sender: SANDOZ
  Company Number: BR-002147023-NVSC2023BR059360

PATIENT
  Age: 77 Year
  Sex: Female
  Weight: 55 kg

DRUGS (18)
  1. ENALAPRIL [Suspect]
     Active Substance: ENALAPRIL
     Indication: Chagas^ cardiomyopathy
     Dosage: (LEVEL 3-10MG)
     Route: 048
     Dates: start: 20141001
  2. ENALAPRIL [Suspect]
     Active Substance: ENALAPRIL
     Dosage: UNK (LEVEL 3-10MG)
     Route: 048
     Dates: start: 20220827
  3. ENALAPRIL [Suspect]
     Active Substance: ENALAPRIL
     Dosage: UNK (LEVEL 3-10MG)
     Route: 048
     Dates: start: 20221205
  4. ALDACTONE [Concomitant]
     Active Substance: SPIRONOLACTONE
     Indication: Heart failure with reduced ejection fraction
     Dosage: 12.5 MG, 100 MG, 25 MG, 50 MG
     Route: 065
     Dates: start: 201410, end: 20240807
  5. AMIODARONE [Concomitant]
     Active Substance: AMIODARONE
     Indication: Atrial fibrillation
     Dosage: 200 MG
     Route: 065
     Dates: start: 20230310
  6. APIXABAN [Concomitant]
     Active Substance: APIXABAN
     Indication: Atrial fibrillation
     Dosage: 5 MG
     Route: 065
     Dates: start: 201510, end: 20240731
  7. ATORVASTATIN [Concomitant]
     Active Substance: ATORVASTATIN
     Indication: Dyslipidaemia
     Dosage: 20 MG
     Route: 065
     Dates: start: 20231207
  8. CARVEDILOL [Concomitant]
     Active Substance: CARVEDILOL
     Indication: Heart failure with reduced ejection fraction
     Dosage: 12.5 MG, STRENGTH: 3,125 MG, 6.25 MG, 25 MG,12.5 MG
     Route: 065
     Dates: start: 201410
  9. DIOSMIN [Concomitant]
     Active Substance: DIOSMIN
     Indication: Peripheral venous disease
     Dosage: 450 MG
     Route: 065
     Dates: start: 20230417, end: 20240731
  10. ENALAPRIL [Concomitant]
     Active Substance: ENALAPRIL
     Indication: Product used for unknown indication
     Dosage: 10 MG
     Route: 065
     Dates: start: 201410
  11. ENALAPRIL [Concomitant]
     Active Substance: ENALAPRIL
     Indication: Heart failure with reduced ejection fraction
  12. FUROSEMIDE [Concomitant]
     Active Substance: FUROSEMIDE
     Indication: Heart failure with reduced ejection fraction
     Dosage: 40 MG
     Route: 065
     Dates: start: 20221017
  13. LEVOTHYROXINE [Concomitant]
     Active Substance: LEVOTHYROXINE\LEVOTHYROXINE SODIUM
     Indication: Hypothyroidism
     Dosage: 50 MG
     Route: 048
     Dates: start: 20151006
  14. LEVOTHYROXINE [Concomitant]
     Active Substance: LEVOTHYROXINE\LEVOTHYROXINE SODIUM
     Dosage: 62.5 UG (62.5 MCG)
     Route: 065
     Dates: start: 20240613
  15. METOPROLOL [Concomitant]
     Active Substance: METOPROLOL
     Indication: Heart failure with reduced ejection fraction
     Dosage: 3.125 MG
     Route: 065
     Dates: start: 20231207, end: 20240731
  16. RISPERIDONE [Concomitant]
     Active Substance: RISPERIDONE
     Indication: Depression
     Dosage: 2 MG
     Route: 065
     Dates: start: 202307, end: 20240731
  17. SERTRALINE [Concomitant]
     Active Substance: SERTRALINE HYDROCHLORIDE
     Indication: Depression
     Dosage: 100 MG
     Route: 065
     Dates: start: 202307
  18. SIMVASTATIN [Concomitant]
     Active Substance: SIMVASTATIN
     Indication: Dyslipidaemia
     Dosage: 40 MG, STRENGTH: 80 MG, 10 MG, 20 MG, 40 MG
     Route: 048

REACTIONS (7)
  - Ventricular arrhythmia [Recovered/Resolved]
  - Hypotension [Recovered/Resolved]
  - Cardiac failure [Recovering/Resolving]
  - Pneumonia bacterial [Recovered/Resolved]
  - Arrhythmia [Recovered/Resolved]
  - Atrial fibrillation [Recovered/Resolved]
  - Arrhythmia supraventricular [Recovered/Resolved]

NARRATIVE: CASE EVENT DATE: 20230226
